FAERS Safety Report 18494055 (Version 4)
Quarter: 2021Q1

REPORT INFORMATION
  Report Type: Spontaneous
  Country: US (occurrence: US)
  Receive Date: 20201112
  Receipt Date: 20210125
  Transmission Date: 20210419
  Serious: No
  Sender: FDA-Public Use
  Company Number: US-GLAXOSMITHKLINE-US2020AMR219450

PATIENT
  Sex: Female

DRUGS (3)
  1. ZEJULA [Suspect]
     Active Substance: NIRAPARIB
     Dosage: 100 MG, QD
     Route: 048
  2. ZEJULA [Suspect]
     Active Substance: NIRAPARIB
     Indication: FALLOPIAN TUBE CANCER
     Dosage: 200 MG, QD
     Route: 065
     Dates: start: 20201020
  3. ZEJULA [Suspect]
     Active Substance: NIRAPARIB
     Dosage: 200 MG, QD

REACTIONS (10)
  - Hypertension [Unknown]
  - Malaise [Recovering/Resolving]
  - Insomnia [Recovering/Resolving]
  - Fatigue [Unknown]
  - Urinary tract infection [Unknown]
  - Muscular weakness [Unknown]
  - Nausea [Recovering/Resolving]
  - Anxiety [Unknown]
  - Platelet count decreased [Not Recovered/Not Resolved]
  - Heart rate increased [Unknown]
